FAERS Safety Report 8838045 (Version 1)
Quarter: 2012Q4

REPORT INFORMATION
  Report Type: 
  Country: JP (occurrence: JP)
  Receive Date: 20121012
  Receipt Date: 20121012
  Transmission Date: 20130627
  Serious: Yes (Other)
  Sender: FDA-Public Use
  Company Number: JP-ASTELLAS-2012JP009494

PATIENT
  Age: 47 Year
  Sex: Male

DRUGS (2)
  1. PROGRAF [Suspect]
     Indication: PROPHYLAXIS AGAINST GRAFT VERSUS HOST DISEASE
     Dosage: UNK
     Route: 065
     Dates: start: 201004
  2. PROGRAF [Suspect]
     Dosage: UNK
     Route: 065
     Dates: end: 201104

REACTIONS (5)
  - Drug ineffective [Unknown]
  - Graft versus host disease [Unknown]
  - Chronic graft versus host disease [Unknown]
  - Renal disorder [Unknown]
  - Pulmonary mycosis [Unknown]
